FAERS Safety Report 16207574 (Version 2)
Quarter: 2019Q2

REPORT INFORMATION
  Report Type: Spontaneous
  Country: US (occurrence: US)
  Receive Date: 20190417
  Receipt Date: 20190522
  Transmission Date: 20190711
  Serious: No
  Sender: FDA-Public Use
  Company Number: US-PFIZER INC-2019164266

PATIENT
  Age: 70 Year
  Sex: Male

DRUGS (1)
  1. GENOTROPIN [Suspect]
     Active Substance: SOMATROPIN
     Indication: GROWTH HORMONE DEFICIENCY
     Dosage: 1.6 MG, DAILY
     Route: 058

REACTIONS (5)
  - Facioscapulohumeral muscular dystrophy [Unknown]
  - Memory impairment [Unknown]
  - Feeling abnormal [Unknown]
  - Asthenia [Unknown]
  - Condition aggravated [Unknown]
